FAERS Safety Report 16271657 (Version 1)
Quarter: 2019Q2

REPORT INFORMATION
  Report Type: Spontaneous
  Country: US (occurrence: US)
  Receive Date: 20190506
  Receipt Date: 20190506
  Transmission Date: 20190711
  Serious: No
  Sender: FDA-Public Use
  Company Number: US-HETERO CORPORATE-HET2019US00509

PATIENT
  Sex: Female

DRUGS (1)
  1. EFAVIRENZ+LAMIVUDINE+TENOFOVIR [Suspect]
     Active Substance: EFAVIRENZ\LAMIVUDINE\TENOFOVIR DISOPROXIL FUMARATE
     Indication: PROPHYLAXIS AGAINST HIV INFECTION
     Dosage: 600MG, 300MG, 300MG
     Route: 065

REACTIONS (2)
  - Feeling abnormal [Unknown]
  - Asthenia [Unknown]
